FAERS Safety Report 8226877-X (Version None)
Quarter: 2012Q1

REPORT INFORMATION
  Report Type: 
  Country: None (occurrence: None)
  Receive Date: 20120322
  Receipt Date: 20120319
  Transmission Date: 20120608
  Serious: Yes (Other)
  Sender: FDA-Public Use
  Company Number: DE-BAYER-201037507GPV

PATIENT
  Age: 29 Year
  Sex: Female
  Weight: 57 kg

DRUGS (2)
  1. BETASERON [Suspect]
  2. BETASERON [Suspect]
     Indication: MULTIPLE SCLEROSIS
     Route: 058
     Dates: start: 20080201, end: 20090620

REACTIONS (4)
  - FATIGUE [None]
  - DYSPNOEA [None]
  - PREMATURE LABOUR [None]
  - PAIN [None]
